FAERS Safety Report 7870997-6 (Version None)
Quarter: 2011Q4

REPORT INFORMATION
  Report Type: 
  Country: None (occurrence: None)
  Receive Date: 20111029
  Receipt Date: 20110223
  Transmission Date: 20120403
  Serious: No
  Sender: FDA-Public Use
  Company Number: US-AMGEN-USASP2011010460

PATIENT
  Sex: Male

DRUGS (2)
  1. ENBREL [Suspect]
     Indication: PSORIATIC ARTHROPATHY
     Dosage: 25 MG, 2 TIMES/WK
     Dates: start: 20020101, end: 20090101
  2. ENBREL [Suspect]
     Indication: PSORIASIS

REACTIONS (2)
  - THERAPEUTIC RESPONSE DECREASED [None]
  - PSORIATIC ARTHROPATHY [None]
